FAERS Safety Report 20755252 (Version 1)
Quarter: 2022Q2

REPORT INFORMATION
  Report Type: Other
  Country: US (occurrence: US)
  Receive Date: 20220427
  Receipt Date: 20220427
  Transmission Date: 20220721
  Serious: Yes (Hospitalization)
  Sender: FDA-Public Use
  Company Number: US-Global Blood Therapeutics Inc-US-GBT-22-02222

PATIENT
  Age: 34 Year
  Sex: Male

DRUGS (7)
  1. OXBRYTA [Suspect]
     Active Substance: VOXELOTOR
     Indication: Sickle cell disease
     Route: 048
  2. HYDROXYUREA [Concomitant]
     Active Substance: HYDROXYUREA
     Indication: Sickle cell disease
  3. FOLIC ACID [Concomitant]
     Active Substance: FOLIC ACID
     Indication: Sickle cell disease
  4. LISINOPRIL [Concomitant]
     Active Substance: LISINOPRIL
     Indication: Sickle cell disease
  5. NALOXONE [Concomitant]
     Active Substance: NALOXONE
     Indication: Overdose
     Route: 045
  6. OXYCODONE [Concomitant]
     Active Substance: OXYCODONE
     Indication: Pain
     Dosage: 5 TO 10 MG EVERY 4 TO 6 HOURS AS NEEDED
     Route: 048
  7. LONG-ACTING MORPHINE SULPHATE [Concomitant]
     Indication: Pain
     Route: 048

REACTIONS (2)
  - Sickle cell anaemia with crisis [Unknown]
  - Insomnia [Unknown]
